FAERS Safety Report 7277626-3 (Version None)
Quarter: 2010Q4

REPORT INFORMATION
  Report Type: 
  Country: None (occurrence: None)
  Receive Date: 20101215
  Receipt Date: 20091021
  Transmission Date: 20110411
  Serious: Yes (Other)
  Sender: FDA-Public Use
  Company Number: ENTC2009-0253

PATIENT
  Sex: Female

DRUGS (6)
  1. STALEVO 100 [Suspect]
     Indication: PARKINSON'S DISEASE
     Dosage: 100 MG, 1 TD, ORAL
     Route: 048
     Dates: start: 20071012
  2. CALCIUM [Suspect]
  3. VIACTIV (USA CALCIUM) [Concomitant]
  4. ARICEPT [Concomitant]
  5. OXYBUTYNIN [Concomitant]
  6. SERTRALINE HYDROCHLORIDE [Concomitant]

REACTIONS (2)
  - CONDITION AGGRAVATED [None]
  - CONFUSIONAL STATE [None]
